FAERS Safety Report 24056421 (Version 1)
Quarter: 2024Q3

REPORT INFORMATION
  Report Type: Spontaneous
  Country: GB (occurrence: GB)
  Receive Date: 20240705
  Receipt Date: 20240705
  Transmission Date: 20241017
  Serious: Yes (Life-Threatening, Hospitalization, Other)
  Sender: ABBVIE
  Company Number: None

PATIENT
  Sex: Male
  Weight: 72 kg

DRUGS (1)
  1. ADALIMUMAB [Suspect]
     Active Substance: ADALIMUMAB\ISOPROPYL ALCOHOL
     Indication: Crohn^s disease
     Dosage: 40MG WEEKLY
     Route: 058
     Dates: start: 20230901, end: 20240221

REACTIONS (6)
  - Brain empyema [Recovered/Resolved with Sequelae]
  - Sinus congestion [Unknown]
  - Eye swelling [Unknown]
  - Pyrexia [Unknown]
  - Confusional state [Unknown]
  - Inflammatory marker increased [Unknown]
